FAERS Safety Report 16216901 (Version 2)
Quarter: 2019Q2

REPORT INFORMATION
  Report Type: Spontaneous
  Country: US (occurrence: US)
  Receive Date: 20190419
  Receipt Date: 20190521
  Transmission Date: 20190711
  Serious: No
  Sender: FDA-Public Use
  Company Number: US-ASTRAZENECA-2019SE46250

PATIENT
  Age: 28933 Day
  Sex: Female
  Weight: 88 kg

DRUGS (1)
  1. SYMBICORT [Suspect]
     Active Substance: BUDESONIDE\FORMOTEROL FUMARATE DIHYDRATE
     Indication: ASTHMA
     Dosage: 80/4.5 MCG, 2 PUFFS TWICE A DAY
     Route: 055
     Dates: start: 2001

REACTIONS (3)
  - Malaise [Not Recovered/Not Resolved]
  - Device malfunction [Unknown]
  - Hypokinesia [Not Recovered/Not Resolved]
